FAERS Safety Report 6167352-6 (Version None)
Quarter: 2009Q2

REPORT INFORMATION
  Report Type: 
  Country: None (occurrence: None)
  Receive Date: 20090424
  Receipt Date: 20090420
  Transmission Date: 20091009
  Serious: Yes (Other)
  Sender: FDA-Public Use
  Company Number: US-KINGPHARMUSA00001-K200900077

PATIENT
  Age: 68 Year
  Sex: Male

DRUGS (4)
  1. ALTACE [Suspect]
     Indication: HYPERTENSION
     Dosage: 1 U, QD
     Route: 048
     Dates: start: 20080101, end: 20081212
  2. SIVASTIN [Concomitant]
     Indication: HYPERCHOLESTEROLAEMIA
     Dosage: 1 U, UNK
     Route: 048
     Dates: start: 20080101, end: 20081212
  3. NORVASC [Concomitant]
     Indication: HYPERTENSION
     Dosage: 1 U, UNK
     Route: 048
     Dates: start: 20080101, end: 20081212
  4. ACETYLSALICYLIC ACID [Concomitant]
     Indication: MYOCARDIAL ISCHAEMIA
     Dosage: 1 U, UNK
     Route: 048
     Dates: start: 20080112, end: 20081212

REACTIONS (2)
  - DYSPHAGIA [None]
  - DYSPHONIA [None]
